FAERS Safety Report 21575966 (Version 2)
Quarter: 2022Q4

REPORT INFORMATION
  Report Type: Spontaneous
  Country: BR (occurrence: BR)
  Receive Date: 20221110
  Receipt Date: 20221229
  Transmission Date: 20230113
  Serious: Yes (Other)
  Sender: FDA-Public Use
  Company Number: BR-SA-2022SA456989

PATIENT
  Age: 41 Year
  Sex: Male

DRUGS (11)
  1. THYMOGLOBULINE [Suspect]
     Active Substance: LAPINE T-LYMPHOCYTE IMMUNE GLOBULIN
     Indication: Immunosuppression
     Dosage: 300 MG, QD
     Route: 042
     Dates: start: 20220804, end: 20220805
  2. ASPIRIN [Concomitant]
     Active Substance: ASPIRIN
     Dosage: 100 MG, QD
     Route: 048
     Dates: start: 20220806
  3. HYDROCORTISONE [Concomitant]
     Active Substance: HYDROCORTISONE
     Dosage: 300 MG, QD
     Route: 042
     Dates: start: 20220804, end: 20220804
  4. CEFAZOLIN [Concomitant]
     Active Substance: CEFAZOLIN
     Dosage: 1 G, Q8H
     Route: 042
     Dates: start: 20220804, end: 20220805
  5. DIPYRONE [Concomitant]
     Active Substance: DIPYRONE
     Dosage: 1 G, QD
     Route: 042
     Dates: start: 20220804, end: 20220805
  6. TACROLIMUS [Concomitant]
     Active Substance: TACROLIMUS
     Dosage: 10 MG, Q12H
     Route: 048
     Dates: start: 20220805
  7. AZATHIOPRINE [Concomitant]
     Active Substance: AZATHIOPRINE
     Dosage: 200 MG, QD
     Route: 048
     Dates: start: 20220805, end: 20220820
  8. PREDNISONE [Concomitant]
     Active Substance: PREDNISONE
     Dosage: 5 MG, QD
     Route: 048
     Dates: start: 20220805
  9. OMEPRAZOLE [Concomitant]
     Active Substance: OMEPRAZOLE
     Dosage: 200 MG, QD
     Route: 048
     Dates: start: 20220805
  10. BACTRIM [Concomitant]
     Active Substance: SULFAMETHOXAZOLE\TRIMETHOPRIM
     Dosage: 200 MG, QD
     Route: 048
     Dates: start: 20220805
  11. MYCOPHENOLATE SODIUM [Concomitant]
     Active Substance: MYCOPHENOLATE SODIUM
     Dosage: 360 MG, Q12H
     Route: 048
     Dates: start: 20220820

REACTIONS (3)
  - Transplant rejection [Unknown]
  - Transplant dysfunction [Unknown]
  - Drug ineffective [Unknown]

NARRATIVE: CASE EVENT DATE: 20220812
